APPROVED DRUG PRODUCT: BLEOMYCIN SULFATE
Active Ingredient: BLEOMYCIN SULFATE
Strength: EQ 15 UNITS BASE/VIAL
Dosage Form/Route: INJECTABLE;INJECTION
Application: A064084 | Product #001
Applicant: TEVA PARENTERAL MEDICINES INC
Approved: Jun 1, 1996 | RLD: No | RS: No | Type: DISCN